FAERS Safety Report 10576539 (Version 3)
Quarter: 2014Q4

REPORT INFORMATION
  Report Type: Spontaneous
  Country: BE (occurrence: BE)
  Receive Date: 20141111
  Receipt Date: 20141127
  Transmission Date: 20150529
  Serious: Yes (Other)
  Sender: FDA-Public Use
  Company Number: BE-ALEXION PHARMACEUTICALS INC.-A201403780

PATIENT

DRUGS (2)
  1. SOLIRIS [Suspect]
     Active Substance: ECULIZUMAB
     Indication: PAROXYSMAL NOCTURNAL HAEMOGLOBINURIA
     Dosage: UNK
     Route: 042
  2. SOLIRIS [Suspect]
     Active Substance: ECULIZUMAB
     Dosage: 900 MG, UNK
     Route: 042

REACTIONS (6)
  - Haemolysis [Unknown]
  - Bone marrow failure [Unknown]
  - Drug ineffective [Not Recovered/Not Resolved]
  - Myelodysplastic syndrome [Unknown]
  - Blood lactate dehydrogenase increased [Unknown]
  - Spinal disorder [Unknown]
